FAERS Safety Report 4374222-2 (Version None)
Quarter: 2004Q2

REPORT INFORMATION
  Report Type: 
  Country: None (occurrence: None)
  Receive Date: 20040609
  Receipt Date: 20040531
  Transmission Date: 20050107
  Serious: Yes (Hospitalization)
  Sender: FDA-Public Use
  Company Number: JP-JNJFOC-20040601284

PATIENT
  Sex: Male
  Weight: 90.3 kg

DRUGS (5)
  1. LEVOFLOXACIN [Suspect]
     Route: 049
     Dates: start: 20040516, end: 20040519
  2. MARZULENE S [Concomitant]
     Route: 049
  3. MARZULENE S [Concomitant]
     Route: 049
  4. ACETAMINOPHEN [Concomitant]
     Route: 049
  5. DASEN [Concomitant]
     Route: 049

REACTIONS (1)
  - BLOOD CREATINE PHOSPHOKINASE INCREASED [None]
